FAERS Safety Report 24607819 (Version 1)
Quarter: 2024Q4

REPORT INFORMATION
  Report Type: Spontaneous
  Country: US (occurrence: None)
  Receive Date: 20241111
  Receipt Date: 20241111
  Transmission Date: 20250115
  Serious: Yes (Hospitalization, Disabling)
  Sender: Public
  Company Number: None

PATIENT
  Age: 21 Year
  Sex: Female
  Weight: 56.7 kg

DRUGS (2)
  1. CEPHALEXIN [Suspect]
     Active Substance: CEPHALEXIN
     Indication: Kidney infection
     Dates: start: 20240712, end: 20240718
  2. MINERALS\VITAMINS [Concomitant]
     Active Substance: MINERALS\VITAMINS

REACTIONS (10)
  - Palpitations [None]
  - Chest pain [None]
  - Anxiety [None]
  - Abdominal pain upper [None]
  - Amnesia [None]
  - Dissociation [None]
  - Brain fog [None]
  - Diarrhoea [None]
  - Near death experience [None]
  - Insomnia [None]

NARRATIVE: CASE EVENT DATE: 20240712
